FAERS Safety Report 4761523-9 (Version None)
Quarter: 2005Q3

REPORT INFORMATION
  Report Type: 
  Country: None (occurrence: None)
  Receive Date: 20050830
  Receipt Date: 20050510
  Transmission Date: 20060218
  Serious: Yes (Other)
  Sender: FDA-Public Use
  Company Number: USA050597858

PATIENT
  Age: 26 Year
  Sex: Male

DRUGS (1)
  1. SYMBYAX [Suspect]

REACTIONS (1)
  - CONVULSION [None]
